FAERS Safety Report 13127434 (Version 4)
Quarter: 2017Q3

REPORT INFORMATION
  Report Type: Report from Study
  Country: IT (occurrence: IT)
  Receive Date: 20170118
  Receipt Date: 20170717
  Transmission Date: 20171127
  Serious: Yes (Hospitalization)
  Sender: FDA-Public Use
  Company Number: IT-AMGEN-ITACT2016182321

PATIENT
  Age: 69 Year
  Sex: Male

DRUGS (14)
  1. AMG 145 [Suspect]
     Active Substance: EVOLOCUMAB
     Indication: TYPE IIA HYPERLIPIDAEMIA
     Dosage: 420 MG, Q2WK
     Route: 058
     Dates: start: 20141008
  2. PREFILLED AUTOINJECTOR/PEN [Suspect]
     Active Substance: DEVICE
     Indication: TYPE IIA HYPERLIPIDAEMIA
     Dosage: UNK
     Route: 058
     Dates: start: 20141008
  3. BISOPROLOL [Concomitant]
     Active Substance: BISOPROLOL
     Dosage: 5 MG, QD
     Route: 048
     Dates: start: 20140226
  4. PROCAPTAN [Concomitant]
     Active Substance: PERINDOPRIL ERBUMINE
     Dosage: UNK
  5. DABIGATRAN [Concomitant]
     Active Substance: DABIGATRAN
     Dosage: 110 MG, BID
     Route: 048
     Dates: start: 20160409
  6. CONCOR [Concomitant]
     Active Substance: BISOPROLOL FUMARATE
     Dosage: UNK
  7. ASPIRINETTA [Concomitant]
     Active Substance: ASPIRIN
     Dosage: UNK
  8. FLECAINIDE ACETATE. [Concomitant]
     Active Substance: FLECAINIDE ACETATE
     Dosage: 50 MG, BID
     Route: 048
     Dates: start: 20140226
  9. LYSINE ACETYLSALICYLIC [Concomitant]
     Active Substance: ASPIRIN LYSINE
     Dosage: 100 MG, QD
     Route: 048
     Dates: start: 20160226
  10. NORVASC [Concomitant]
     Active Substance: AMLODIPINE BESYLATE
     Dosage: UNK
  11. PANTORC [Concomitant]
     Active Substance: PANTOPRAZOLE SODIUM
     Dosage: UNK
  12. PERINDOPRIL [Concomitant]
     Active Substance: PERINDOPRIL
     Dosage: 5 MG, QD
     Route: 048
     Dates: start: 20140226
  13. ALMARYTM [Concomitant]
     Active Substance: FLECAINIDE ACETATE
     Dosage: UNK
  14. PRADAXA [Concomitant]
     Active Substance: DABIGATRAN ETEXILATE MESYLATE
     Dosage: UNK

REACTIONS (2)
  - Macular hole [Recovered/Resolved]
  - Cataract [Recovered/Resolved]

NARRATIVE: CASE EVENT DATE: 20161002
